FAERS Safety Report 25978639 (Version 1)
Quarter: 2025Q4

REPORT INFORMATION
  Report Type: Other
  Country: CN (occurrence: CN)
  Receive Date: 20251030
  Receipt Date: 20251030
  Transmission Date: 20260117
  Serious: Yes (Hospitalization, Other)
  Sender: ANI
  Company Number: CN-ANIPHARMA-031001

PATIENT
  Age: 70 Year
  Sex: Female

DRUGS (3)
  1. CYCLOPHOSPHAMIDE [Suspect]
     Active Substance: CYCLOPHOSPHAMIDE
     Indication: Anti-neutrophil cytoplasmic antibody positive vasculitis
  2. ROXADUSTAT [Concomitant]
     Active Substance: ROXADUSTAT
     Indication: Anti-neutrophil cytoplasmic antibody positive vasculitis
  3. RITUXIMAB [Concomitant]
     Active Substance: RITUXIMAB
     Indication: Anti-neutrophil cytoplasmic antibody positive vasculitis

REACTIONS (5)
  - Haematochezia [Unknown]
  - Cytomegalovirus colitis [Unknown]
  - Clostridium difficile infection [Unknown]
  - Deep vein thrombosis [Unknown]
  - Pneumonia [Unknown]
